FAERS Safety Report 7999494-4 (Version None)
Quarter: 2011Q4

REPORT INFORMATION
  Report Type: 
  Country: None (occurrence: None)
  Receive Date: 20111221
  Receipt Date: 20111216
  Transmission Date: 20120403
  Serious: Yes (Other)
  Sender: FDA-Public Use
  Company Number: US-PFIZER INC-2011306804

PATIENT
  Sex: Female
  Weight: 11.791 kg

DRUGS (2)
  1. CHILDREN'S ADVIL COLD [Suspect]
     Indication: PYREXIA
     Dosage: 5.5 ML, AS NEEDED
     Dates: start: 20111211, end: 20111215
  2. CEFDINIR [Concomitant]
     Indication: EAR INFECTION
     Dosage: THREE FOURTH TEASPOON, 2X/DAY

REACTIONS (2)
  - DRUG INEFFECTIVE [None]
  - PYREXIA [None]
